FAERS Safety Report 8520154-5 (Version None)
Quarter: 2012Q3

REPORT INFORMATION
  Report Type: 
  Country: None (occurrence: None)
  Receive Date: 20120719
  Receipt Date: 20120706
  Transmission Date: 20120928
  Serious: Yes (Other)
  Sender: FDA-Public Use
  Company Number: ES-JNJFOC-20120611575

PATIENT
  Age: 65 Year
  Sex: Male
  Weight: 89 kg

DRUGS (7)
  1. ZYTIGA [Suspect]
     Indication: PROSTATE CANCER STAGE IV
     Route: 048
     Dates: start: 20120501, end: 20120601
  2. PREDNISONE [Concomitant]
     Route: 048
     Dates: start: 20120501
  3. IBUPROFEN [Concomitant]
     Indication: CANCER PAIN
     Route: 065
  4. LYRICA [Concomitant]
     Indication: CANCER PAIN
     Route: 065
  5. PREDNISONE [Concomitant]
     Indication: PROSTATE CANCER STAGE IV
     Route: 048
     Dates: start: 20120703
  6. MORPHINE [Concomitant]
     Indication: CANCER PAIN
  7. ZYTIGA [Suspect]
     Route: 048
     Dates: start: 20120703

REACTIONS (2)
  - FACE OEDEMA [None]
  - OEDEMA PERIPHERAL [None]
